FAERS Safety Report 5463868-6 (Version None)
Quarter: 2007Q3

REPORT INFORMATION
  Report Type: 
  Country: None (occurrence: None)
  Receive Date: 20070712
  Receipt Date: 20070503
  Transmission Date: 20080115
  Serious: Yes (Life-Threatening)
  Sender: FDA-Public Use
  Company Number: 200711907

PATIENT
  Age: 36 Year
  Sex: Female
  Weight: 56.6996 kg

DRUGS (6)
  1. CARIMUNE NF (CSL BEHRING) [Suspect]
     Indication: HYPOGAMMAGLOBULINAEMIA
     Dosage: 20 G Q1MO IV; 25 G Q1MO IV; 25 G Q1MO IV
     Route: 042
     Dates: start: 20050501, end: 20061201
  2. CARIMUNE NF (CSL BEHRING) [Suspect]
     Indication: LYME DISEASE
     Dosage: 20 G Q1MO IV; 25 G Q1MO IV; 25 G Q1MO IV
     Route: 042
     Dates: start: 20050501, end: 20061201
  3. CARIMUNE NF (CSL BEHRING) [Suspect]
     Indication: HYPOGAMMAGLOBULINAEMIA
     Dosage: 20 G Q1MO IV; 25 G Q1MO IV; 25 G Q1MO IV
     Route: 042
     Dates: start: 20070503, end: 20070503
  4. CARIMUNE NF (CSL BEHRING) [Suspect]
     Indication: LYME DISEASE
     Dosage: 20 G Q1MO IV; 25 G Q1MO IV; 25 G Q1MO IV
     Route: 042
     Dates: start: 20070503, end: 20070503
  5. CARIMUNE NF (CSL BEHRING) [Suspect]
     Indication: HYPOGAMMAGLOBULINAEMIA
     Dosage: 20 G Q1MO IV; 25 G Q1MO IV; 25 G Q1MO IV
     Route: 042
     Dates: start: 20070101
  6. CARIMUNE NF (CSL BEHRING) [Suspect]
     Indication: LYME DISEASE
     Dosage: 20 G Q1MO IV; 25 G Q1MO IV; 25 G Q1MO IV
     Route: 042
     Dates: start: 20070101

REACTIONS (3)
  - DYSPHAGIA [None]
  - DYSPNOEA [None]
  - PHARYNGEAL OEDEMA [None]
